FAERS Safety Report 17559825 (Version 1)
Quarter: 2020Q1

REPORT INFORMATION
  Report Type: Spontaneous
  Country: RU (occurrence: RU)
  Receive Date: 20200319
  Receipt Date: 20200319
  Transmission Date: 20200409
  Serious: Yes (Death, Other)
  Sender: FDA-Public Use
  Company Number: RU-ROCHE-2567477

PATIENT
  Sex: Male

DRUGS (8)
  1. LENALIDOMIDE [Suspect]
     Active Substance: LENALIDOMIDE
     Indication: LYMPHOCYTIC LEUKAEMIA
     Dosage: 1 COURSE OF LR REGIMEN
     Route: 065
     Dates: start: 20121107, end: 20121114
  2. DEXAMETHASONE. [Suspect]
     Active Substance: DEXAMETHASONE
     Indication: PRODUCT USED FOR UNKNOWN INDICATION
     Route: 065
  3. PREDNISOLONE. [Suspect]
     Active Substance: PREDNISOLONE
     Indication: LYMPHOCYTIC LEUKAEMIA
     Route: 065
  4. CYCLOPHOSPHAMIDE. [Suspect]
     Active Substance: CYCLOPHOSPHAMIDE
     Indication: LYMPHOCYTIC LEUKAEMIA
     Dosage: 2 COURSES OF RFC-LITE REGIMEN
     Route: 065
     Dates: start: 2013, end: 2013
  5. BENDAMUSTINE [Suspect]
     Active Substance: BENDAMUSTINE
     Indication: LYMPHOCYTIC LEUKAEMIA
     Dosage: 1 COURSE OF BENDAMUSTIN MONOTHERAPY
     Route: 065
     Dates: start: 20131001
  6. RITUXIMAB. [Suspect]
     Active Substance: RITUXIMAB
     Dosage: 2 COURSES OF RFC-LITE REGIMEN
     Route: 065
     Dates: start: 2013, end: 2013
  7. FLUDARABINE [Suspect]
     Active Substance: FLUDARABINE PHOSPHATE
     Indication: LYMPHOCYTIC LEUKAEMIA
     Dosage: 2 COURSES OF RFC-LITE REGIMEN
     Route: 065
  8. RITUXIMAB. [Suspect]
     Active Substance: RITUXIMAB
     Indication: LYMPHOCYTIC LEUKAEMIA
     Dosage: 1 COURSE OF LR REGIMEN
     Route: 065
     Dates: start: 20121107, end: 20121114

REACTIONS (3)
  - Encephalitis [Unknown]
  - Pneumonia [Unknown]
  - Cerebral salt-wasting syndrome [Unknown]
